FAERS Safety Report 8603457-5 (Version None)
Quarter: 2012Q3

REPORT INFORMATION
  Report Type: 
  Country: None (occurrence: None)
  Receive Date: 20120817
  Receipt Date: 20120801
  Transmission Date: 20120928
  Serious: Yes (Other)
  Sender: FDA-Public Use
  Company Number: US-ASTRAZENECA-2012SE43723

PATIENT
  Sex: Male

DRUGS (6)
  1. ATIVAN [Concomitant]
     Dates: start: 19990201
  2. COGENTIN [Concomitant]
     Dates: start: 19990201
  3. THORAZINE [Concomitant]
     Dates: start: 19990201
  4. SEROQUEL [Suspect]
     Route: 048
     Dates: start: 20040325
  5. SEROQUEL [Suspect]
     Route: 048
     Dates: start: 20010101
  6. HALDOL [Concomitant]
     Dates: start: 19990201

REACTIONS (5)
  - DIABETES MELLITUS [None]
  - HYPERTENSION [None]
  - CATARACT [None]
  - PANCREATIC DISORDER [None]
  - OBESITY [None]
